FAERS Safety Report 18224572 (Version 2)
Quarter: 2020Q3

REPORT INFORMATION
  Report Type: Spontaneous
  Country: US (occurrence: US)
  Receive Date: 20200902
  Receipt Date: 20200908
  Transmission Date: 20201103
  Serious: Yes (Hospitalization)
  Sender: FDA-Public Use
  Company Number: US-SEATTLE GENETICS-2020SGN03683

PATIENT
  Sex: Female

DRUGS (1)
  1. TUKYSA [Suspect]
     Active Substance: TUCATINIB
     Indication: BREAST CANCER FEMALE
     Dosage: 150 MG

REACTIONS (8)
  - Constipation [Unknown]
  - Unevaluable event [Unknown]
  - Hospitalisation [Unknown]
  - Pharyngeal swelling [Unknown]
  - Asthenia [Unknown]
  - Vomiting [Unknown]
  - Disease progression [Unknown]
  - Nausea [Unknown]
